FAERS Safety Report 12216435 (Version 1)
Quarter: 2016Q1

REPORT INFORMATION
  Report Type: Spontaneous
  Country: US (occurrence: None)
  Receive Date: 20160328
  Receipt Date: 20160328
  Transmission Date: 20160526
  Serious: Yes (Hospitalization)
  Sender: FDA-Public Use
  Company Number: None

PATIENT
  Age: 67 Year
  Sex: Male
  Weight: 106.4 kg

DRUGS (1)
  1. ZOLEDRONIC [Suspect]
     Active Substance: ZOLEDRONIC ACID
     Indication: OSTEOPOROSIS
     Route: 042
     Dates: start: 20141023, end: 20151119

REACTIONS (8)
  - Blood pressure systolic decreased [None]
  - Pruritus [None]
  - Cold sweat [None]
  - Urticaria [None]
  - Angina pectoris [None]
  - Hyperhidrosis [None]
  - Hypotension [None]
  - Dizziness [None]

NARRATIVE: CASE EVENT DATE: 20151119
